FAERS Safety Report 8509059-3 (Version None)
Quarter: 2012Q3

REPORT INFORMATION
  Report Type: 
  Country: None (occurrence: None)
  Receive Date: 20120703
  Receipt Date: 20110621
  Transmission Date: 20120928
  Serious: Yes (Life-Threatening, Other)
  Sender: FDA-Public Use
  Company Number: JP-2011-1020

PATIENT
  Age: 61 Year
  Sex: Male

DRUGS (12)
  1. CARVEDILOL [Concomitant]
  2. TARCEVA [Concomitant]
  3. ROCALTROL [Concomitant]
  4. NAVELBINE [Suspect]
     Indication: LUNG NEOPLASM MALIGNANT
     Dosage: 20 MG/M2 UNK IV
     Route: 042
     Dates: start: 20110414
  5. CANDESARTAN CILEXETIL [Concomitant]
  6. TICLOPIDINE HCL [Concomitant]
  7. RABEPRAZOLE SODIUM [Concomitant]
  8. SEVELAMER HYDROCHLORIDE [Concomitant]
  9. ALDOMET [Concomitant]
  10. KALIMATE [Concomitant]
  11. CALCIUM LACTATE [Concomitant]
  12. GLAKAY [Concomitant]

REACTIONS (2)
  - PLEURAL EFFUSION [None]
  - HYPERSENSITIVITY [None]
